FAERS Safety Report 4338160-3 (Version None)
Quarter: 2004Q2

REPORT INFORMATION
  Report Type: 
  Country: None (occurrence: None)
  Receive Date: 20040407
  Receipt Date: 20040330
  Transmission Date: 20050107
  Serious: No
  Sender: FDA-Public Use
  Company Number: CH-SHR-04-021521

PATIENT
  Sex: Female

DRUGS (1)
  1. MIRENA [Suspect]
     Indication: CONTRACEPTION
     Dosage: 20 MG, CONT, INTRA-UTERINE
     Route: 015
     Dates: start: 20030901

REACTIONS (2)
  - CARPAL TUNNEL SYNDROME [None]
  - CONDITION AGGRAVATED [None]
